FAERS Safety Report 10424480 (Version 3)
Quarter: 2014Q3

REPORT INFORMATION
  Report Type: Spontaneous
  Country: SK (occurrence: SK)
  Receive Date: 20140902
  Receipt Date: 20140916
  Transmission Date: 20150326
  Serious: Yes (Death, Other)
  Sender: FDA-Public Use
  Company Number: SK-PFIZER INC-2014184404

PATIENT
  Age: 69 Year
  Sex: Male

DRUGS (1)
  1. INLYTA [Suspect]
     Active Substance: AXITINIB
     Indication: RENAL CELL CARCINOMA
     Dosage: 5 MG, 2X/DAY
     Dates: start: 20130314, end: 201404

REACTIONS (7)
  - Postrenal failure [Recovered/Resolved]
  - Renal cell carcinoma [Fatal]
  - Hydronephrosis [Recovered/Resolved]
  - Disease progression [Fatal]
  - Blood thyroid stimulating hormone increased [Recovered/Resolved]
  - Upper gastrointestinal haemorrhage [Fatal]
  - Dysphonia [Recovered/Resolved]

NARRATIVE: CASE EVENT DATE: 201401
